FAERS Safety Report 19728963 (Version 1)
Quarter: 2021Q3

REPORT INFORMATION
  Report Type: Spontaneous
  Country: DE (occurrence: DE)
  Receive Date: 20210820
  Receipt Date: 20210820
  Transmission Date: 20211014
  Serious: Yes (Hospitalization)
  Sender: FDA-Public Use
  Company Number: DE-TEVA-2021-DE-1942591

PATIENT
  Age: 67 Year
  Sex: Female

DRUGS (8)
  1. PANTOPRAZOL [Concomitant]
     Active Substance: PANTOPRAZOLE SODIUM
     Dosage: 40 MILLIGRAM DAILY;  1?0?0?0
     Route: 048
  2. INSULIN HUMAN [Concomitant]
     Active Substance: INSULIN HUMAN
     Dosage: 1 IU, REQUIRED, CYLINDRICAL AMPOULES
     Route: 058
  3. CITALOPRAM [Concomitant]
     Active Substance: CITALOPRAM HYDROBROMIDE
     Dosage: 30 MILLIGRAM DAILY;  1?0?0?0
     Route: 048
  4. HYDROCHLOROTHIAZID [Suspect]
     Active Substance: HYDROCHLOROTHIAZIDE
     Dosage: 12.5 MILLIGRAM DAILY;  1?0?0?0
     Route: 048
  5. RAMIPRIL. [Suspect]
     Active Substance: RAMIPRIL
     Dosage: 5 MILLIGRAM DAILY; 1?0?0?0
     Route: 048
  6. APIXABAN [Concomitant]
     Active Substance: APIXABAN
     Dosage: 5 MILLIGRAM DAILY; 1?0?1?0
     Route: 048
  7. DULAGLUTID [Suspect]
     Active Substance: DULAGLUTIDE
     Dosage: 1.5 MG, ACCORDING TO THE SCHEME, PRE?FILLED PEN
     Route: 058
  8. BETAHISTIN [Concomitant]
     Active Substance: BETAHISTINE
     Dosage: 48 MILLIGRAM DAILY; 1?0?1?0
     Route: 048

REACTIONS (6)
  - Pyrexia [Unknown]
  - Chills [Unknown]
  - Infection [Unknown]
  - Blood creatinine increased [Unknown]
  - Abdominal pain lower [Unknown]
  - Dysuria [Unknown]
